FAERS Safety Report 7972489-2 (Version None)
Quarter: 2011Q4

REPORT INFORMATION
  Report Type: 
  Country: None (occurrence: None)
  Receive Date: 20111213
  Receipt Date: 20111202
  Transmission Date: 20120403
  Serious: Yes (Hospitalization, Disabling)
  Sender: FDA-Public Use
  Company Number: NL-AMGEN-NLDSP2011026960

PATIENT
  Age: 68 Year
  Sex: Male

DRUGS (7)
  1. PREDNISONE [Concomitant]
     Indication: RHEUMATOID ARTHRITIS
     Dosage: 10 MG, UNK
     Route: 048
     Dates: start: 20070605
  2. ENBREL [Suspect]
     Indication: RHEUMATOID ARTHRITIS
     Dosage: 50 MG ONCE WEEKLY
     Dates: start: 20100423
  3. ENBREL [Suspect]
     Dosage: 50 MG ONCE WEEKLY
     Dates: start: 20110501
  4. CALCIUM CARBONATE [Concomitant]
     Indication: RHEUMATOID ARTHRITIS
     Dosage: 500 MG, UNK
     Route: 048
     Dates: start: 20070807
  5. OMEPRAZOLE [Concomitant]
     Indication: RHEUMATOID ARTHRITIS
     Dosage: 20 MG, UNK
     Route: 048
     Dates: start: 20070807
  6. METHOTREXATE [Concomitant]
     Indication: RHEUMATOID ARTHRITIS
     Dosage: 25 UNK, QWK
     Route: 058
     Dates: start: 20070807
  7. RISEDRONAAT [Concomitant]
     Indication: RHEUMATOID ARTHRITIS
     Dosage: 35 MG
     Route: 048
     Dates: start: 20070807

REACTIONS (2)
  - CEREBROVASCULAR ACCIDENT [None]
  - HEMIPARESIS [None]
